FAERS Safety Report 7945129-6 (Version None)
Quarter: 2011Q4

REPORT INFORMATION
  Report Type: 
  Country: None (occurrence: None)
  Receive Date: 20111129
  Receipt Date: 20111129
  Transmission Date: 20120403
  Serious: Yes (Hospitalization)
  Sender: FDA-Public Use
  Company Number: None

PATIENT
  Age: 14 Year
  Sex: Male
  Weight: 68.038 kg

DRUGS (1)
  1. HALOPERIDOL [Suspect]
     Dosage: 5MG
     Route: 048
     Dates: start: 20110928, end: 20111002

REACTIONS (4)
  - EXTRAPYRAMIDAL DISORDER [None]
  - FEELING ABNORMAL [None]
  - MUSCLE CONTRACTIONS INVOLUNTARY [None]
  - DYSPNOEA [None]
